FAERS Safety Report 21625536 (Version 2)
Quarter: 2022Q4

REPORT INFORMATION
  Report Type: Spontaneous
  Country: US (occurrence: US)
  Receive Date: 20221122
  Receipt Date: 20221219
  Transmission Date: 20230113
  Serious: Yes (Other)
  Sender: FDA-Public Use
  Company Number: US-SUN PHARMACEUTICAL INDUSTRIES LTD-2022R1-364596

PATIENT
  Age: 56 Year
  Sex: Female
  Weight: 99.32 kg

DRUGS (2)
  1. BACTRIM [Suspect]
     Active Substance: SULFAMETHOXAZOLE\TRIMETHOPRIM
     Indication: Product used for unknown indication
     Dosage: UNK
     Route: 065
  2. PAXLOVID [Suspect]
     Active Substance: NIRMATRELVIR\RITONAVIR
     Indication: Product used for unknown indication
     Dosage: 300MG/150MG
     Route: 065

REACTIONS (9)
  - Drug ineffective [Unknown]
  - Sepsis [Unknown]
  - Hypokalaemia [Unknown]
  - Flank pain [Unknown]
  - Hepatic lesion [Unknown]
  - Dehydration [Unknown]
  - Normocytic anaemia [Unknown]
  - Hypomagnesaemia [Unknown]
  - Blood culture positive [Unknown]

NARRATIVE: CASE EVENT DATE: 20221017
